APPROVED DRUG PRODUCT: BUPROPION HYDROCHLORIDE
Active Ingredient: BUPROPION HYDROCHLORIDE
Strength: 100MG
Dosage Form/Route: TABLET, EXTENDED RELEASE;ORAL
Application: A076845 | Product #001
Applicant: SANDOZ INC
Approved: Jul 14, 2005 | RLD: No | RS: No | Type: DISCN